FAERS Safety Report 14978338 (Version 1)
Quarter: 2018Q2

REPORT INFORMATION
  Report Type: Spontaneous
  Country: DE (occurrence: DE)
  Receive Date: 20180606
  Receipt Date: 20180606
  Transmission Date: 20180711
  Serious: Yes (Life-Threatening, Hospitalization, Other)
  Sender: FDA-Public Use
  Company Number: PHHY2018DE013224

PATIENT
  Age: 73 Year
  Sex: Male
  Weight: 68 kg

DRUGS (24)
  1. CARBOPLATIN. [Suspect]
     Active Substance: CARBOPLATIN
     Dosage: 405.18 MG, Q3W
     Route: 042
     Dates: start: 20150108, end: 20150108
  2. PANTOPRAZOL [Concomitant]
     Active Substance: PANTOPRAZOLE SODIUM
     Indication: DYSPEPSIA
     Dosage: 40 MG, UNK
     Route: 048
  3. CHLORHEXIDIN [Concomitant]
     Active Substance: CHLORHEXIDINE
     Indication: PROPHYLAXIS
     Dosage: 5 OT, QD
     Route: 048
     Dates: start: 20150210
  4. CIPROFLOXACIN. [Concomitant]
     Active Substance: CIPROFLOXACIN
     Indication: PROPHYLAXIS
     Dosage: 1000 MG, QD
     Route: 048
     Dates: start: 20150210
  5. CARBOPLATIN. [Suspect]
     Active Substance: CARBOPLATIN
     Indication: BRONCHIAL CARCINOMA
     Dosage: 512 MG, Q3W
     Route: 042
     Dates: start: 20141118
  6. ALIMTA [Suspect]
     Active Substance: PEMETREXED DISODIUM
     Dosage: 662.5 MG, Q3W
     Route: 042
     Dates: start: 20150108, end: 20150108
  7. FOLINIC ACID [Concomitant]
     Active Substance: LEUCOVORIN
     Indication: PRODUCT USED FOR UNKNOWN INDICATION
     Dosage: 5 MG, UNK
     Route: 065
  8. SIMVASTATIN. [Concomitant]
     Active Substance: SIMVASTATIN
     Indication: PRODUCT USED FOR UNKNOWN INDICATION
     Dosage: UNK
     Route: 065
  9. ALIMTA [Suspect]
     Active Substance: PEMETREXED DISODIUM
     Dosage: 652.5 MG, Q3W
     Route: 042
     Dates: start: 20150129
  10. AMPHO-MORONAL [Concomitant]
     Active Substance: AMPHOTERICIN B
     Indication: PROPHYLAXIS
     Dosage: 5 OT, QD
     Route: 048
     Dates: start: 20150210
  11. CARBOPLATIN. [Suspect]
     Active Substance: CARBOPLATIN
     Dosage: 358.24 MG, Q3W
     Route: 042
     Dates: start: 20150129
  12. AVASTIN [Suspect]
     Active Substance: BEVACIZUMAB
     Dosage: 15 MG/KG, Q3W
     Route: 042
     Dates: start: 20150129
  13. ALIMTA [Suspect]
     Active Substance: PEMETREXED DISODIUM
     Indication: BRONCHIAL CARCINOMA
     Dosage: 875 MG, Q3W
     Route: 042
     Dates: start: 20141118
  14. BISOPROLOL [Concomitant]
     Active Substance: BISOPROLOL
     Indication: PRODUCT USED FOR UNKNOWN INDICATION
     Dosage: 2.5 MG, UNK
     Route: 048
  15. DOLO POSTERINE [Concomitant]
     Indication: PRODUCT USED FOR UNKNOWN INDICATION
     Dosage: UNK
     Route: 054
  16. ZOPICLON [Concomitant]
     Active Substance: ZOPICLONE
     Indication: PRODUCT USED FOR UNKNOWN INDICATION
     Dosage: UNK
     Route: 065
  17. AVASTIN [Suspect]
     Active Substance: BEVACIZUMAB
     Dosage: 15 MG/KG, Q3W
     Route: 042
     Dates: start: 20150108, end: 20150108
  18. AMLODIPIN [Concomitant]
     Active Substance: AMLODIPINE BESYLATE
     Indication: HYPERTENSION
     Dosage: 5 MG, UNK
     Route: 048
  19. RAMIPRIL. [Concomitant]
     Active Substance: RAMIPRIL
     Indication: HYPERTENSION
     Dosage: 10 MG, QD
     Route: 048
  20. AVASTIN [Suspect]
     Active Substance: BEVACIZUMAB
     Indication: BRONCHIAL CARCINOMA
     Dosage: 15 MG/KG, Q3W
     Route: 042
     Dates: start: 20141118
  21. ASPIRIN. [Concomitant]
     Active Substance: ASPIRIN
     Indication: PAIN
     Dosage: 100 MG, UNK
     Route: 048
  22. NOVAMINSULFON [Concomitant]
     Active Substance: METAMIZOLE
     Indication: PRODUCT USED FOR UNKNOWN INDICATION
     Dosage: UNK
     Route: 065
  23. TRYASOL [Concomitant]
     Indication: PRODUCT USED FOR UNKNOWN INDICATION
     Dosage: UNK
     Route: 065
  24. DEKRISTOL [Concomitant]
     Active Substance: CHOLECALCIFEROL
     Indication: PRODUCT USED FOR UNKNOWN INDICATION
     Dosage: UNK
     Route: 065

REACTIONS (11)
  - Leukopenia [Recovering/Resolving]
  - Poor quality sleep [Not Recovered/Not Resolved]
  - Asthenia [Recovered/Resolved]
  - Anaemia [Recovering/Resolving]
  - Fatigue [Unknown]
  - Haemorrhoidal haemorrhage [Recovering/Resolving]
  - Thrombocytopenia [Recovered/Resolved]
  - Fatigue [Recovered/Resolved]
  - Sleep disorder [Not Recovered/Not Resolved]
  - Poor quality sleep [Recovered/Resolved]
  - Insomnia [Unknown]

NARRATIVE: CASE EVENT DATE: 20141204
